FAERS Safety Report 24015417 (Version 1)
Quarter: 2024Q2

REPORT INFORMATION
  Report Type: Report from Study
  Country: IN (occurrence: None)
  Receive Date: 20240626
  Receipt Date: 20240626
  Transmission Date: 20240716
  Serious: Yes (Hospitalization)
  Sender: FDA-Public Use
  Company Number: 2024A141420

PATIENT
  Age: 60 Year
  Sex: Female
  Weight: 53 kg

DRUGS (1)
  1. IMFINZI [Suspect]
     Active Substance: DURVALUMAB
     Indication: Intravesical immunotherapy
     Route: 042
     Dates: start: 20240610

REACTIONS (5)
  - Diarrhoea [Recovering/Resolving]
  - Blood pressure decreased [Recovering/Resolving]
  - Blood albumin decreased [Recovering/Resolving]
  - Ascites [Recovering/Resolving]
  - Platelet count decreased [Recovering/Resolving]
